FAERS Safety Report 8925028 (Version 2)
Quarter: 2013Q4

REPORT INFORMATION
  Report Type: Spontaneous
  Country: JP (occurrence: None)
  Receive Date: 20121116
  Receipt Date: 20131010
  Transmission Date: 20140711
  Serious: Yes (Hospitalization, Other)
  Sender: FDA-Public Use
  Company Number: 2009JP005343

PATIENT
  Age: 27 Year
  Sex: Female
  Weight: 54 kg

DRUGS (13)
  1. PROGRAF (TACROLIMUS) CAPSULE [Suspect]
     Indication: LUPUS NEPHRITIS
     Route: 048
     Dates: start: 20070813, end: 20120110
  2. MEDROL [Suspect]
     Indication: LUPUS NEPHRITIS
     Route: 048
  3. CICLOSPORIN (CICLOSPROIN) [Concomitant]
  4. GASLON N (IRSOGLADINE MALEATE) [Concomitant]
  5. GASTER [Concomitant]
  6. FERROMIA (FERROUS SODIUM CITARTE) [Concomitant]
  7. PREDNISOLONE [Suspect]
     Indication: LUPUS NEPHRITIS
     Route: 048
     Dates: start: 20100421, end: 20110427
  8. TANATRIL (IMIDAPRIL HYDROCHLORIDE) [Concomitant]
  9. TANATRIL (IMIDAPRIL HYDROCHLORIDE) [Concomitant]
  10. BREDININ (MIZORBINE) [Concomitant]
  11. OMEPRAL /00661201/ (OMEPRAZOLE) [Concomitant]
  12. PERSANTIN (DIPYRIDAMOLE) [Concomitant]
  13. EPADEL (ETHYL ICOSAPENTATE) [Concomitant]

REACTIONS (7)
  - Intentional overdose [None]
  - Chest pain [None]
  - Visual field defect [None]
  - DNA antibody positive [None]
  - Complement factor C3 decreased [None]
  - Iron deficiency anaemia [None]
  - Palpitations [None]
